FAERS Safety Report 16382722 (Version 1)
Quarter: 2019Q2

REPORT INFORMATION
  Report Type: Spontaneous
  Country: US (occurrence: US)
  Receive Date: 20190426
  Receipt Date: 20190426
  Transmission Date: 20190711
  Serious: Yes (Other)
  Sender: FDA-Public Use
  Company Number: None

PATIENT
  Age: 80 Year
  Sex: Female
  Weight: 90.72 kg

DRUGS (5)
  1. LEVOFLOXACIN 750MG TAB [Suspect]
     Active Substance: LEVOFLOXACIN
     Indication: LOCALISED INFECTION
     Dosage: ?          QUANTITY:1 DF DOSAGE FORM;OTHER FREQUENCY:1/DAY FOR 10 DAYS;?
     Route: 048
     Dates: start: 20190213, end: 20190223
  2. COLAGENICS [Concomitant]
  3. LEVOFLOXACIN 750MG TAB [Suspect]
     Active Substance: LEVOFLOXACIN
     Indication: STAPHYLOCOCCAL INFECTION
     Dosage: ?          QUANTITY:1 DF DOSAGE FORM;OTHER FREQUENCY:1/DAY FOR 10 DAYS;?
     Route: 048
     Dates: start: 20190213, end: 20190223
  4. NANO SILVER TOOTHPASTE [Concomitant]
     Active Substance: GLYCERIN\SILICON DIOXIDE\SODIUM MONOFLUOROPHOSPHATE
  5. VITAMINS [Concomitant]
     Active Substance: VITAMINS

REACTIONS (1)
  - Headache [None]

NARRATIVE: CASE EVENT DATE: 20190213
